FAERS Safety Report 10011740 (Version 1)
Quarter: 2014Q1

REPORT INFORMATION
  Report Type: Spontaneous
  Country: US (occurrence: None)
  Receive Date: 20140313
  Receipt Date: 20140313
  Transmission Date: 20141002
  Serious: Yes (Hospitalization)
  Sender: FDA-Public Use
  Company Number: None

PATIENT
  Age: 58 Year
  Sex: Male

DRUGS (1)
  1. EZOGABINE 50MG GLAXO SMITHKLINE [Suspect]
     Indication: CONVULSION
     Dosage: 3 PILLS TID  PER G-TUBE
     Route: 048
     Dates: start: 20131014, end: 20131227

REACTIONS (5)
  - Pyrexia [None]
  - Urinary retention [None]
  - Somnolence [None]
  - Aspiration [None]
  - Urinary tract infection [None]
